FAERS Safety Report 17089018 (Version 2)
Quarter: 2020Q1

REPORT INFORMATION
  Report Type: Spontaneous
  Country: US (occurrence: US)
  Receive Date: 20191128
  Receipt Date: 20200302
  Transmission Date: 20200409
  Serious: Yes (Disabling, Other)
  Sender: FDA-Public Use
  Company Number: US-009507513-1911USA010410

PATIENT
  Age: 66 Year
  Sex: Female

DRUGS (4)
  1. KEYTRUDA [Suspect]
     Active Substance: PEMBROLIZUMAB
     Indication: METASTATIC MALIGNANT MELANOMA
     Dosage: 200 MG EVERY 21 DAYS
     Route: 042
     Dates: start: 20190920, end: 20191122
  2. LEVOTHYROXINE SODIUM. [Concomitant]
     Active Substance: LEVOTHYROXINE SODIUM
  3. OXYCODONE [Concomitant]
     Active Substance: OXYCODONE
  4. ASPIRIN. [Concomitant]
     Active Substance: ASPIRIN

REACTIONS (2)
  - Deafness [Unknown]
  - Autoimmune disorder [Unknown]

NARRATIVE: CASE EVENT DATE: 20191106
